FAERS Safety Report 7957274-X (Version None)
Quarter: 2011Q4

REPORT INFORMATION
  Report Type: 
  Country: None (occurrence: None)
  Receive Date: 20111201
  Receipt Date: 20111115
  Transmission Date: 20120403
  Serious: Yes (Other)
  Sender: FDA-Public Use
  Company Number: FK201102739

PATIENT
  Age: 40 Year
  Sex: Female

DRUGS (3)
  1. LEUCOVORIN (CALCIUM FOLINATE) (CALCIUM FOLINATE) [Concomitant]
  2. FLUOROURACIL (FLUOROURACIL0 (FLUOROURACIL) [Concomitant]
  3. IRINOTECAN HCL [Suspect]
     Indication: COLON CANCER
     Dosage: 150 MG/M2, ON DAY 1

REACTIONS (2)
  - DYSARTHRIA [None]
  - NEOPLASM PROGRESSION [None]
